FAERS Safety Report 19641841 (Version 1)
Quarter: 2021Q3

REPORT INFORMATION
  Report Type: Spontaneous
  Country: LT (occurrence: LT)
  Receive Date: 20210731
  Receipt Date: 20210731
  Transmission Date: 20211014
  Serious: Yes (Other)
  Sender: FDA-Public Use
  Company Number: LT-JNJFOC-20210761305

PATIENT
  Age: 89 Year
  Sex: Female

DRUGS (3)
  1. COVERAM [Concomitant]
     Active Substance: AMLODIPINE\PERINDOPRIL
     Indication: HYPERTENSION
     Dosage: QTR TABLET, NOT EACH DAY
  2. SPIRIX [Concomitant]
     Active Substance: SPIRONOLACTONE
     Indication: HYPERTENSION
     Dosage: ONE TABLET EVERY THIRD DAY OR EVEN RARE
  3. XARELTO [Suspect]
     Active Substance: RIVAROXABAN
     Indication: PRODUCT USED FOR UNKNOWN INDICATION
     Dosage: 20 MG, QD
     Route: 048
     Dates: start: 2019

REACTIONS (10)
  - Nipple exudate bloody [Unknown]
  - Asthenia [Unknown]
  - Blood pressure decreased [Unknown]
  - Fall [Unknown]
  - Fatigue [Unknown]
  - Poor quality sleep [Unknown]
  - Anxiety [Unknown]
  - Dizziness [Recovered/Resolved]
  - Breast haematoma [Unknown]
  - Hypotension [Not Recovered/Not Resolved]

NARRATIVE: CASE EVENT DATE: 202106
